FAERS Safety Report 6229702-1 (Version None)
Quarter: 2009Q2

REPORT INFORMATION
  Report Type: 
  Country: None (occurrence: None)
  Receive Date: 20090615
  Receipt Date: 20090603
  Transmission Date: 20091009
  Serious: Yes (Other)
  Sender: FDA-Public Use
  Company Number: GB-MERCK-0906GBR00021

PATIENT
  Age: 62 Year
  Sex: Female
  Weight: 84 kg

DRUGS (3)
  1. COZAAR [Suspect]
     Indication: HYPERTENSION
     Route: 048
     Dates: start: 20090505, end: 20090101
  2. ASPIRIN [Concomitant]
     Route: 065
  3. ALBUTEROL [Concomitant]

REACTIONS (2)
  - ARTHRALGIA [None]
  - GRIP STRENGTH DECREASED [None]
